FAERS Safety Report 5917606-0 (Version None)
Quarter: 2008Q4

REPORT INFORMATION
  Report Type: 
  Country: None (occurrence: None)
  Receive Date: 20081014
  Receipt Date: 20081006
  Transmission Date: 20090506
  Serious: Yes (Hospitalization, Other)
  Sender: FDA-Public Use
  Company Number: US-MERCK-0702USA04761

PATIENT
  Age: 78 Year
  Sex: Female
  Weight: 65 kg

DRUGS (2)
  1. FOSAMAX [Suspect]
     Indication: OSTEOPOROSIS
     Route: 065
     Dates: start: 19981228, end: 20041201
  2. HORMONES (UNSPECIFIED) [Concomitant]
     Route: 065
     Dates: start: 19590101, end: 19980101

REACTIONS (62)
  - ACUTE MYOCARDIAL INFARCTION [None]
  - ANAEMIA [None]
  - ANXIETY [None]
  - ARTERIOSCLEROSIS [None]
  - ARTHRALGIA [None]
  - ARTHROPATHY [None]
  - ASTHENIA [None]
  - BACK PAIN [None]
  - CARDIAC ANEURYSM [None]
  - CARDIAC DISORDER [None]
  - CARDIAC FAILURE CONGESTIVE [None]
  - CATARACT [None]
  - CONSTIPATION [None]
  - DEHYDRATION [None]
  - DENTAL CARIES [None]
  - DEPRESSION [None]
  - DIARRHOEA [None]
  - DUODENITIS [None]
  - EATING DISORDER [None]
  - EDENTULOUS [None]
  - FAECALOMA [None]
  - FAILURE TO THRIVE [None]
  - FALL [None]
  - FEAR [None]
  - FEMORAL NECK FRACTURE [None]
  - GALLBLADDER DISORDER [None]
  - GASTRITIS [None]
  - GASTROOESOPHAGEAL REFLUX DISEASE [None]
  - GINGIVAL BLEEDING [None]
  - GINGIVAL DISORDER [None]
  - HEAD INJURY [None]
  - HYPERTENSION [None]
  - HYPERTENSIVE CRISIS [None]
  - HYPOKALAEMIA [None]
  - HYPONATRAEMIA [None]
  - HYPOTENSION [None]
  - IMPAIRED HEALING [None]
  - INSOMNIA [None]
  - ISCHAEMIC CARDIOMYOPATHY [None]
  - LEFT VENTRICULAR FAILURE [None]
  - MAJOR DEPRESSION [None]
  - MENTAL DISORDER DUE TO A GENERAL MEDICAL CONDITION [None]
  - MIXED HYPERLIPIDAEMIA [None]
  - OBSTRUCTIVE AIRWAYS DISORDER [None]
  - OEDEMA MOUTH [None]
  - OESOPHAGEAL DISORDER [None]
  - OESOPHAGEAL STENOSIS [None]
  - ORAL DISORDER [None]
  - ORAL INFECTION [None]
  - ORAL PAIN [None]
  - OSTEOARTHRITIS [None]
  - OSTEONECROSIS [None]
  - PERIODONTAL DISEASE [None]
  - PNEUMONIA [None]
  - PRESBYOESOPHAGUS [None]
  - PRESYNCOPE [None]
  - PRIMARY SEQUESTRUM [None]
  - PULMONARY OEDEMA [None]
  - SYNCOPE [None]
  - TONGUE ULCERATION [None]
  - TOOTH FRACTURE [None]
  - URINARY TRACT INFECTION [None]
